FAERS Safety Report 21067024 (Version 1)
Quarter: 2022Q3

REPORT INFORMATION
  Report Type: Spontaneous
  Country: CA (occurrence: CA)
  Receive Date: 20220712
  Receipt Date: 20220712
  Transmission Date: 20221027
  Serious: Yes (Other)
  Sender: FDA-Public Use
  Company Number: CA-JNJFOC-20220716873

PATIENT
  Age: 54 Year
  Sex: Male
  Weight: 88 kg

DRUGS (2)
  1. REMICADE [Suspect]
     Active Substance: INFLIXIMAB
     Indication: Crohn^s disease
     Route: 041
  2. IRON [Concomitant]
     Active Substance: IRON
     Route: 065

REACTIONS (5)
  - Prostatomegaly [Unknown]
  - Weight increased [Unknown]
  - Prostate infection [Unknown]
  - Off label use [Unknown]
  - Inappropriate schedule of product administration [Unknown]
